FAERS Safety Report 13109954 (Version 1)
Quarter: 2017Q1

REPORT INFORMATION
  Report Type: Spontaneous
  Country: US (occurrence: US)
  Receive Date: 20170112
  Receipt Date: 20170112
  Transmission Date: 20170428
  Serious: Yes (Hospitalization, Other)
  Sender: FDA-Public Use
  Company Number: US-ROCHE-1099243

PATIENT
  Age: 43 Year
  Sex: Male

DRUGS (1)
  1. ACTIVASE [Suspect]
     Active Substance: ALTEPLASE
     Indication: MYOCARDIAL INFARCTION
     Route: 042

REACTIONS (4)
  - Hypotension [Unknown]
  - Ventricular tachycardia [Unknown]
  - Atrioventricular dissociation [Unknown]
  - Ventricular arrhythmia [Unknown]
